FAERS Safety Report 21741119 (Version 3)
Quarter: 2022Q4

REPORT INFORMATION
  Report Type: Spontaneous
  Country: US (occurrence: US)
  Receive Date: 20221216
  Receipt Date: 20221227
  Transmission Date: 20230113
  Serious: Yes (Other)
  Sender: FDA-Public Use
  Company Number: US-JNJFOC-20221230104

PATIENT
  Sex: Male
  Weight: 77.3 kg

DRUGS (4)
  1. OPSUMIT [Suspect]
     Active Substance: MACITENTAN
     Indication: Product used for unknown indication
     Route: 048
  2. VELETRI [Suspect]
     Active Substance: EPOPROSTENOL
     Indication: Pulmonary hypertension
     Route: 042
  3. ADEMPAS [Suspect]
     Active Substance: RIOCIGUAT
     Indication: Product used for unknown indication
     Route: 065
  4. ELIQUIS [Concomitant]
     Active Substance: APIXABAN

REACTIONS (6)
  - Hallucination [Unknown]
  - Product dose omission issue [Unknown]
  - Malaise [Unknown]
  - Diarrhoea [Not Recovered/Not Resolved]
  - Fatigue [Unknown]
  - Atrial flutter [Unknown]
